FAERS Safety Report 9357846 (Version 1)
Quarter: 2013Q2

REPORT INFORMATION
  Report Type: Spontaneous
  Country: DE (occurrence: DE)
  Receive Date: 20130620
  Receipt Date: 20130620
  Transmission Date: 20140414
  Serious: Yes (Disabling)
  Sender: FDA-Public Use
  Company Number: DE-009507513-1306DEU007041

PATIENT
  Age: 31 Year
  Sex: Female
  Weight: 62 kg

DRUGS (1)
  1. NUVARING [Suspect]
     Dosage: UNKNOWN
     Route: 067
     Dates: start: 20130406, end: 20130427

REACTIONS (5)
  - Astigmatism [Not Recovered/Not Resolved]
  - Visual acuity reduced [Recovering/Resolving]
  - Contact lens intolerance [Unknown]
  - Headache [Recovered/Resolved]
  - Migraine [Recovered/Resolved]
